FAERS Safety Report 8585553-4 (Version None)
Quarter: 2012Q3

REPORT INFORMATION
  Report Type: 
  Country: None (occurrence: None)
  Receive Date: 20120810
  Receipt Date: 20120802
  Transmission Date: 20120928
  Serious: Yes (Life-Threatening, Other)
  Sender: FDA-Public Use
  Company Number: RU-JNJFOC-20120803009

PATIENT
  Sex: Male
  Weight: 45 kg

DRUGS (6)
  1. REMICADE [Suspect]
     Route: 042
     Dates: start: 20120607
  2. REMICADE [Suspect]
     Indication: ANKYLOSING SPONDYLITIS
     Dosage: FIRST INFUSION
     Route: 042
     Dates: start: 20120524
  3. BISOPROLOL FUMARATE [Concomitant]
     Indication: TACHYCARDIA
     Route: 048
     Dates: start: 20111101
  4. NISE [Concomitant]
     Indication: SPONDYLITIS
     Route: 048
     Dates: start: 20111101
  5. REMICADE [Suspect]
     Route: 042
     Dates: start: 20120723, end: 20120723
  6. SULFASALAZINE [Concomitant]
     Indication: ANKYLOSING SPONDYLITIS
     Route: 048
     Dates: start: 20111101

REACTIONS (6)
  - APHASIA [None]
  - INFUSION RELATED REACTION [None]
  - CYANOSIS [None]
  - OCULAR HYPERAEMIA [None]
  - DRUG HYPERSENSITIVITY [None]
  - DYSPNOEA [None]
